FAERS Safety Report 22104023 (Version 1)
Quarter: 2023Q1

REPORT INFORMATION
  Report Type: Spontaneous
  Country: US (occurrence: US)
  Receive Date: 20230316
  Receipt Date: 20230316
  Transmission Date: 20230418
  Serious: Yes (Death, Other)
  Sender: FDA-Public Use
  Company Number: US-MYLANLABS-202200764908

PATIENT
  Age: 10 Year
  Sex: Male

DRUGS (7)
  1. CELECOXIB [Suspect]
     Active Substance: CELECOXIB
     Indication: Neuroblastoma
     Dosage: UNK, (500 MG PER M2, 1 TIME PER DAY, DAYS 22-41)
     Route: 065
  2. CELECOXIB [Suspect]
     Active Substance: CELECOXIB
     Indication: Neuroblastoma recurrent
  3. ETOPOSIDE [Suspect]
     Active Substance: ETOPOSIDE
     Indication: Neuroblastoma
     Dosage: UNK (50 MG PER M2, 1 TIME PER DAY, DAYS 1-21
     Route: 048
  4. ETOPOSIDE [Suspect]
     Active Substance: ETOPOSIDE
     Indication: Neuroblastoma recurrent
  5. CYCLOPHOSPHAMIDE [Suspect]
     Active Substance: CYCLOPHOSPHAMIDE
     Indication: Neuroblastoma
     Dosage: UNK (75 MG PER M2, 1 TIME PER DAY, 22-4)
     Route: 048
  6. CYCLOPHOSPHAMIDE [Suspect]
     Active Substance: CYCLOPHOSPHAMIDE
     Indication: Neuroblastoma recurrent
  7. SULINDAC [Suspect]
     Active Substance: SULINDAC
     Indication: Neuroblastoma
     Dosage: UNK (4 MG PER KG, 1 TIME PER DAY)
     Route: 065

REACTIONS (6)
  - Death [Fatal]
  - Haematemesis [Unknown]
  - Pneumonia aspiration [Unknown]
  - Gastritis haemorrhagic [Unknown]
  - No adverse event [Unknown]
  - Product substitution issue [Unknown]
